FAERS Safety Report 7379762-X (Version None)
Quarter: 2011Q1

REPORT INFORMATION
  Report Type: 
  Country: None (occurrence: None)
  Receive Date: 20110318
  Receipt Date: 20110307
  Transmission Date: 20110831
  Serious: Yes (Hospitalization)
  Sender: FDA-Public Use
  Company Number: 11-000252

PATIENT
  Age: 59 Year
  Sex: Female
  Weight: 61.2 kg

DRUGS (6)
  1. FEMRING [Suspect]
     Indication: MENOPAUSE
     Dosage: 0.05 MG, QD, VAGINAL
     Route: 067
     Dates: start: 20090101
  2. ASPIRIN [Concomitant]
  3. ASCORBIC ACID [Concomitant]
  4. CALCIUM (CALCIUM GLUBIONATE) [Concomitant]
  5. TEGRETOL [Concomitant]
  6. FISH OIL (FISH OIL) [Concomitant]

REACTIONS (5)
  - BARTHOLIN'S CYST [None]
  - HOT FLUSH [None]
  - HYPERHIDROSIS [None]
  - DRUG INEFFECTIVE [None]
  - TERMINAL INSOMNIA [None]
